FAERS Safety Report 9559574 (Version 1)
Quarter: 2013Q3

REPORT INFORMATION
  Report Type: Spontaneous
  Country: US (occurrence: None)
  Receive Date: 20130906
  Receipt Date: 20130906
  Transmission Date: 20140515
  Serious: Yes (Other)
  Sender: FDA-Public Use
  Company Number: 163-POMAL-13071524

PATIENT
  Age: 60 Year
  Sex: Female
  Weight: 81.65 kg

DRUGS (7)
  1. POMALYST (POMALIDOMIDE) (4 MILLIGRAM, CAPSULES) [Suspect]
     Indication: PLASMA CELL MYELOMA
     Route: 048
     Dates: start: 20130612
  2. CENTRUM SILVER (CENTRUM SILVER) [Concomitant]
  3. SINGULAIR (MONTELUKAST) 10MG [Concomitant]
  4. DEXAMETHASONE (DEXAMETHASONE) [Concomitant]
  5. ZYRTEC (CETIRIZINE HYDROCHLORIDE) [Concomitant]
  6. ACYCLOVIR (ACICLOVIR) (ACICLOVIR) [Concomitant]
  7. KYPROLIS (CARFILZOMIB) [Concomitant]

REACTIONS (1)
  - Hypertension [None]
